FAERS Safety Report 14994370 (Version 1)
Quarter: 2018Q2

REPORT INFORMATION
  Report Type: Spontaneous
  Country: US (occurrence: US)
  Receive Date: 20180611
  Receipt Date: 20180611
  Transmission Date: 20180711
  Serious: No
  Sender: FDA-Public Use
  Company Number: US-BAYER-2018-107864

PATIENT
  Age: 75 Year
  Sex: Female
  Weight: 50.98 kg

DRUGS (9)
  1. OMEPRAZOLE. [Concomitant]
     Active Substance: OMEPRAZOLE
  2. TUMS [Concomitant]
     Active Substance: CALCIUM CARBONATE
  3. GAS-X [Concomitant]
     Active Substance: DIMETHICONE
  4. VICODIN [Concomitant]
     Active Substance: ACETAMINOPHEN\HYDROCODONE BITARTRATE
  5. LEVOTHYROXIN [Concomitant]
     Active Substance: LEVOTHYROXINE
  6. HYDROCHLOROTHIAZIDE. [Concomitant]
     Active Substance: HYDROCHLOROTHIAZIDE
  7. LOSARTAN. [Concomitant]
     Active Substance: LOSARTAN
  8. MIRALAX [Suspect]
     Active Substance: POLYETHYLENE GLYCOL 3350
     Indication: GASTROINTESTINAL DISORDER
     Dosage: 2 DF, UNK
     Route: 048
     Dates: start: 201806
  9. CALCITRIOL. [Concomitant]
     Active Substance: CALCITRIOL

REACTIONS (3)
  - Incorrect dose administered [Unknown]
  - Product prescribing issue [Unknown]
  - Product use issue [Unknown]
